FAERS Safety Report 10637701 (Version 1)
Quarter: 2014Q4

REPORT INFORMATION
  Report Type: Spontaneous
  Country: US (occurrence: None)
  Receive Date: 20141121
  Receipt Date: 20141121
  Transmission Date: 20150529
  Serious: No
  Sender: FDA-Public Use
  Company Number: 163-10004-14072887

PATIENT
  Age: 54 Year
  Sex: Female

DRUGS (26)
  1. OTEZLA [Suspect]
     Active Substance: APREMILAST
     Indication: PSORIATIC ARTHROPATHY
     Route: 048
  2. ZOLPIDEM (ZOLPIDEM) (TABLETS) [Concomitant]
  3. MOBIC (MELOXICAM) (TABLETS) [Concomitant]
  4. TAMSULOSIN (TAMSULOSIN) (CAPSULES) [Concomitant]
  5. ENALAPRIL (ENALAPRIL) (TABLETS) [Concomitant]
  6. SULFASALAZIN (SULFASALAZINE) (TABLETS) [Concomitant]
  7. XTANDI (ENZALUTAMIDE) (CAPSULES) [Concomitant]
  8. VITAMIN D (ERGOCALCIFEROL) (CAPSULES) [Concomitant]
     Active Substance: ERGOCALCIFEROL
  9. TACLONEX (DAIVOBET) (OINTMENT) [Concomitant]
  10. GABAPENTIN (GABAPENTIN) (100 MILLIGRAM, CAPSULES) [Concomitant]
  11. ENEMA (ENEMAS) (UNKNOWN) [Concomitant]
  12. MITOMYCIN (MITOMYCIN) (INJECTION) [Concomitant]
  13. FOSTEUM (FOSTEUM) (CAPSULES) [Concomitant]
  14. LIDODERM (LIDOCAINE) (GEL) [Concomitant]
  15. DOXEPIN (DOXEPIN) (CAPSULES) [Concomitant]
  16. METHOTREXATE (METHOTREXATE) (TABLETS) [Concomitant]
  17. FOLIC ACID (FOLIC ACID) (TABLETS) [Concomitant]
  18. HORMONE CREAM BASE (HORMONES) (UNKNOWN) [Concomitant]
  19. NAPROSYN (NAPROXEN) (TABLETS) [Concomitant]
  20. VOLTAREN (GEL) [Concomitant]
  21. CLOBETASOL (CLOBETASOL) (CREAM) [Concomitant]
  22. OMEPRAXOLE (OMEPRAZOLE) (CAPSULES) [Concomitant]
  23. FLUOCINONIDE (FLUOCINONIDE) (CREAM) [Concomitant]
  24. ENSURE PLUS (UNKNOWN) [Concomitant]
  25. HYDROCODONE/APAP (VICODIN) (TABLETS) [Concomitant]
  26. FENTANYL (FENTANYL) (POULTICE OR PATCH) [Concomitant]
     Active Substance: FENTANYL

REACTIONS (2)
  - Diarrhoea [None]
  - Vomiting [None]
